FAERS Safety Report 5926672-8 (Version None)
Quarter: 2008Q4

REPORT INFORMATION
  Report Type: 
  Country: None (occurrence: None)
  Receive Date: 20081022
  Receipt Date: 20080924
  Transmission Date: 20090506
  Serious: Yes (Other)
  Sender: FDA-Public Use
  Company Number: JP-AVENTIS-200813010JP

PATIENT
  Age: 54 Year
  Sex: Female

DRUGS (4)
  1. ARAVA [Suspect]
     Indication: RHEUMATOID ARTHRITIS
     Route: 048
     Dates: start: 20050614, end: 20050818
  2. REMICADE [Concomitant]
     Dates: start: 20050201, end: 20050728
  3. ENBREL [Concomitant]
     Dates: start: 20050728, end: 20051101
  4. CORTICOSTEROIDS [Concomitant]
     Dates: start: 20080613, end: 20080613

REACTIONS (1)
  - LIVER FUNCTION TEST ABNORMAL [None]
